FAERS Safety Report 9413651 (Version 1)
Quarter: 2013Q1

REPORT INFORMATION
  Report Type: Spontaneous
  Country: US (occurrence: None)
  Receive Date: 20130123
  Receipt Date: 20130123
  Transmission Date: 20140127
  Serious: Yes (Death)
  Sender: FDA-Public Use
  Company Number: ADR-2013UNK001

PATIENT
  Sex: 0

DRUGS (4)
  1. ZIDOVUDINE [Suspect]
     Indication: ACQUIRED IMMUNODEFICIENCY SYNDROME
     Dosage: 600 MG/DAY + ORAL
     Route: 048
     Dates: start: 20071018, end: 20071201
  2. NEVIRAPINE [Suspect]
     Indication: ACQUIRED IMMUNODEFICIENCY SYNDROME
     Dosage: 400 MG/DAY + ORAL
     Route: 048
     Dates: start: 20071018, end: 20071201
  3. DIDANOSINE [Concomitant]
  4. ATAZANAVIR SULFATE (REYATAZ, ATV) [Concomitant]

REACTIONS (3)
  - Exposure during pregnancy [None]
  - Stillbirth [None]
  - Malaria [None]
